FAERS Safety Report 13149275 (Version 1)
Quarter: 2017Q1

REPORT INFORMATION
  Report Type: Spontaneous
  Country: US (occurrence: US)
  Receive Date: 20170125
  Receipt Date: 20170125
  Transmission Date: 20170428
  Serious: Yes (Death)
  Sender: FDA-Public Use
  Company Number: US-PFIZER INC-2017029134

PATIENT
  Age: 61 Year
  Sex: Female

DRUGS (5)
  1. ACETAMINOPHEN. [Suspect]
     Active Substance: ACETAMINOPHEN
     Dosage: UNK
     Route: 048
  2. HYDROCODONE [Suspect]
     Active Substance: HYDROCODONE
     Dosage: UNK
     Route: 048
  3. LORAZEPAM. [Suspect]
     Active Substance: LORAZEPAM
     Dosage: UNK
     Route: 048
  4. MORPHINE SULFATE. [Suspect]
     Active Substance: MORPHINE SULFATE
     Dosage: UNK
     Route: 048
  5. CLONAZEPAM. [Suspect]
     Active Substance: CLONAZEPAM
     Dosage: UNK
     Route: 048

REACTIONS (3)
  - Completed suicide [Fatal]
  - Cardiac arrest [Fatal]
  - Respiratory arrest [Fatal]

NARRATIVE: CASE EVENT DATE: 2015
